FAERS Safety Report 6646152-4 (Version None)
Quarter: 2010Q1

REPORT INFORMATION
  Report Type: 
  Country: None (occurrence: None)
  Receive Date: 20100323
  Receipt Date: 20100312
  Transmission Date: 20100710
  Serious: Yes (Hospitalization)
  Sender: FDA-Public Use
  Company Number: US-JNJFOC-20100300235

PATIENT
  Age: 17 Year
  Sex: Male
  Weight: 61.24 kg

DRUGS (2)
  1. TYLENOL [Suspect]
     Route: 048
  2. TYLENOL [Suspect]
     Indication: HEADACHE
     Route: 048

REACTIONS (4)
  - CARDIAC OPERATION [None]
  - DYSPNOEA [None]
  - PRODUCT QUALITY ISSUE [None]
  - SUPRAVENTRICULAR TACHYCARDIA [None]
